FAERS Safety Report 16456240 (Version 1)
Quarter: 2019Q2

REPORT INFORMATION
  Report Type: Spontaneous
  Country: US (occurrence: US)
  Receive Date: 20190510
  Receipt Date: 20190510
  Transmission Date: 20190711
  Serious: No
  Sender: FDA-Public Use
  Company Number: None

PATIENT
  Age: 15 Year
  Sex: Male

DRUGS (1)
  1. HUMATROPE [Suspect]
     Active Substance: SOMATROPIN
     Indication: HYPOPITUITARISM
     Dosage: ?          OTHER FREQUENCY:6 TIMES WEEKLY ;?
     Route: 058
     Dates: start: 20190126

REACTIONS (3)
  - Upper limb fracture [None]
  - Sports injury [None]
  - Scoliosis [None]

NARRATIVE: CASE EVENT DATE: 201904
